FAERS Safety Report 8048114-1 (Version None)
Quarter: 2012Q1

REPORT INFORMATION
  Report Type: 
  Country: None (occurrence: None)
  Receive Date: 20120112
  Receipt Date: 20120112
  Transmission Date: 20120608
  Serious: No
  Sender: FDA-Public Use
  Company Number: None

PATIENT
  Age: 42 Year
  Sex: Female

DRUGS (3)
  1. BURTS BEES NATURAL ACNE SOLUTION KIT [Suspect]
  2. BURTS BEES NATURAL ACNE SOLUTION KIT [Suspect]
     Dosage: ONCE A DAY
     Dates: start: 20110801
  3. BURTS BEES NATURAL ACNE SOLUTION KIT [Suspect]

REACTIONS (5)
  - DRUG INEFFECTIVE [None]
  - APPLICATION SITE ERYTHEMA [None]
  - APPLICATION SITE RASH [None]
  - NERVE INJURY [None]
  - APPLICATION SITE PAIN [None]
